FAERS Safety Report 16862147 (Version 1)
Quarter: 2019Q4

REPORT INFORMATION
  Report Type: Spontaneous
  Country: US (occurrence: US)
  Receive Date: 20190927
  Receipt Date: 20190927
  Transmission Date: 20200122
  Serious: Yes (Hospitalization)
  Sender: FDA-Public Use
  Company Number: None

PATIENT
  Age: 63 Year
  Sex: Female

DRUGS (21)
  1. CLARITIN [Concomitant]
     Active Substance: LORATADINE
  2. FOLIC ACID. [Concomitant]
     Active Substance: FOLIC ACID
  3. SINGULAIR [Concomitant]
     Active Substance: MONTELUKAST SODIUM
  4. AMITIZA [Concomitant]
     Active Substance: LUBIPROSTONE
  5. OXYCODONE [Concomitant]
     Active Substance: OXYCODONE
  6. VYVANSE [Concomitant]
     Active Substance: LISDEXAMFETAMINE DIMESYLATE
  7. XELJANZ [Suspect]
     Active Substance: TOFACITINIB CITRATE
     Indication: ARTHROPATHY
     Route: 048
     Dates: start: 20180126
  8. AMLODIPINE [Concomitant]
     Active Substance: AMLODIPINE BESYLATE
  9. ESOMEPRA [Concomitant]
     Active Substance: ESOMEPRAZOLE
  10. ALMOTRIPTAN. [Concomitant]
     Active Substance: ALMOTRIPTAN
  11. MORPHINE SUL [Concomitant]
     Active Substance: MORPHINE SULFATE
  12. PREDNISONE. [Concomitant]
     Active Substance: PREDNISONE
  13. CYCLOBENZAPR [Concomitant]
     Active Substance: CYCLOBENZAPRINE
  14. LOTEMAX [Concomitant]
     Active Substance: LOTEPREDNOL ETABONATE
  15. LYRICA [Concomitant]
     Active Substance: PREGABALIN
  16. PHENERGAN [Concomitant]
     Active Substance: PROMETHAZINE HYDROCHLORIDE
  17. RAPAFLO [Concomitant]
     Active Substance: SILODOSIN
  18. SIMVASTATIN. [Concomitant]
     Active Substance: SIMVASTATIN
  19. ESTRADIOL. [Concomitant]
     Active Substance: ESTRADIOL
  20. SUMATRIPTAN. [Concomitant]
     Active Substance: SUMATRIPTAN
  21. TOBRADEX [Concomitant]
     Active Substance: DEXAMETHASONE\TOBRAMYCIN

REACTIONS (1)
  - Neck surgery [None]

NARRATIVE: CASE EVENT DATE: 20190826
